FAERS Safety Report 7788206-5 (Version None)
Quarter: 2011Q3

REPORT INFORMATION
  Report Type: 
  Country: None (occurrence: None)
  Receive Date: 20110930
  Receipt Date: 20110923
  Transmission Date: 20111222
  Serious: Yes (Other)
  Sender: FDA-Public Use
  Company Number: US-JNJFOC-20110910134

PATIENT
  Age: 58 Year
  Sex: Female

DRUGS (3)
  1. NORVASC [Concomitant]
     Indication: HYPERTENSION
     Route: 048
  2. DOXORUBICIN HCL [Suspect]
     Indication: OVARIAN CANCER STAGE IV
     Route: 042
     Dates: start: 20110301
  3. TOPROL-XL [Concomitant]
     Indication: HYPERTENSION
     Route: 048

REACTIONS (1)
  - CARBOHYDRATE ANTIGEN 125 INCREASED [None]
